FAERS Safety Report 7202398-8 (Version None)
Quarter: 2010Q4

REPORT INFORMATION
  Report Type: 
  Country: None (occurrence: None)
  Receive Date: 20101216
  Receipt Date: 20101208
  Transmission Date: 20110411
  Serious: Yes (Hospitalization, Other)
  Sender: FDA-Public Use
  Company Number: 2010120002

PATIENT
  Age: 71 Year
  Sex: Female

DRUGS (4)
  1. ONSOLIS [Suspect]
     Indication: CANCER PAIN
     Dosage: TITRATE UP TO 4-200 MCG FILMS/DOSE (UP TO 4 TIMES DAILY),BU
     Route: 002
     Dates: start: 20101101, end: 20101101
  2. OXYCODONE HCL [Concomitant]
  3. DURAGESIC-100 [Concomitant]
  4. PROCRIT [Concomitant]

REACTIONS (2)
  - LUNG NEOPLASM MALIGNANT [None]
  - MALIGNANT NEOPLASM PROGRESSION [None]
